FAERS Safety Report 13007440 (Version 2)
Quarter: 2018Q1

REPORT INFORMATION
  Report Type: Spontaneous
  Country: FR (occurrence: FR)
  Receive Date: 20161207
  Receipt Date: 20180124
  Transmission Date: 20180508
  Serious: Yes (Hospitalization, Other)
  Sender: FDA-Public Use
  Company Number: FR-ASTRAZENECA-2016SF27386

PATIENT
  Age: 43 Year
  Sex: Female
  Weight: 72.2 kg

DRUGS (17)
  1. CORTANCYL [Suspect]
     Active Substance: PREDNISONE
     Indication: RHEUMATOID ARTHRITIS
     Route: 048
     Dates: start: 201111
  2. FORADIL [Concomitant]
     Active Substance: FORMOTEROL FUMARATE
  3. METHOTREXATE. [Concomitant]
     Active Substance: METHOTREXATE
  4. TRAMADOL. [Concomitant]
     Active Substance: TRAMADOL
  5. SYMBICORT [Suspect]
     Active Substance: BUDESONIDE\FORMOTEROL FUMARATE DIHYDRATE
     Indication: ASTHMA
     Dosage: 160/4.5 UG TWO TIMES DAILY
     Route: 055
  6. METFORMIN [Concomitant]
     Active Substance: METFORMIN HYDROCHLORIDE
  7. DIFFU K [Concomitant]
     Active Substance: POTASSIUM CHLORIDE
  8. CACIT VITAMINE D3 [Concomitant]
     Active Substance: CALCIUM CARBONATE\CHOLECALCIFEROL
  9. ENBREL [Concomitant]
     Active Substance: ETANERCEPT
  10. INEXIUM [Concomitant]
     Active Substance: ESOMEPRAZOLE
  11. GALVUS [Concomitant]
     Active Substance: VILDAGLIPTIN
  12. SEROPRAM (CITALOPRAM HYDROBROMIDE) [Concomitant]
     Active Substance: CITALOPRAM HYDROBROMIDE
  13. ACTONEL [Concomitant]
     Active Substance: RISEDRONATE SODIUM
  14. SPECIAFOLDINE [Concomitant]
     Active Substance: FOLIC ACID
  15. LAROXYL [Concomitant]
     Active Substance: AMITRIPTYLINE HYDROCHLORIDE
  16. STILNOX [Concomitant]
     Active Substance: ZOLPIDEM TARTRATE
  17. TANGANIL [Concomitant]
     Active Substance: ACETYLLEUCINE

REACTIONS (1)
  - Diabetes mellitus [Not Recovered/Not Resolved]

NARRATIVE: CASE EVENT DATE: 201604
